FAERS Safety Report 10181507 (Version 1)
Quarter: 2014Q2

REPORT INFORMATION
  Report Type: Spontaneous
  Country: US (occurrence: US)
  Receive Date: 20140519
  Receipt Date: 20140519
  Transmission Date: 20141212
  Serious: Yes (Death, Hospitalization)
  Sender: FDA-Public Use
  Company Number: US-GLAXOSMITHKLINE-A1073142A

PATIENT
  Age: 73 Year
  Sex: Male

DRUGS (4)
  1. ARIXTRA [Suspect]
     Indication: THROMBOSIS
     Dosage: 7.5MG PER DAY
     Route: 042
     Dates: start: 201211, end: 201404
  2. REMERON [Concomitant]
  3. SPIRIVA [Concomitant]
  4. DUONEB [Concomitant]

REACTIONS (1)
  - Respiratory failure [Fatal]
